FAERS Safety Report 7395382-5 (Version None)
Quarter: 2011Q2

REPORT INFORMATION
  Report Type: 
  Country: None (occurrence: None)
  Receive Date: 20110405
  Receipt Date: 20110322
  Transmission Date: 20111010
  Serious: Yes (Hospitalization)
  Sender: FDA-Public Use
  Company Number: US-JNJFOC-20110202415

PATIENT
  Sex: Male
  Weight: 31.9 kg

DRUGS (7)
  1. LORATADINE [Concomitant]
     Route: 048
  2. VITAMIN D [Concomitant]
     Route: 048
  3. REMICADE [Suspect]
     Indication: INFLAMMATORY BOWEL DISEASE
     Route: 042
  4. REMICADE [Suspect]
     Route: 042
  5. IRON SUPPLEMENT [Concomitant]
     Route: 048
  6. MULTI-VITAMINS [Concomitant]
  7. PREVACID [Concomitant]
     Route: 048

REACTIONS (1)
  - LARGE INTESTINE PERFORATION [None]
